FAERS Safety Report 5488577-9 (Version None)
Quarter: 2007Q4

REPORT INFORMATION
  Report Type: 
  Country: None (occurrence: None)
  Receive Date: 20071017
  Receipt Date: 20060825
  Transmission Date: 20080405
  Serious: No
  Sender: FDA-Public Use
  Company Number: A0618066A

PATIENT
  Age: 72 Year
  Sex: Female

DRUGS (4)
  1. CEFTIN [Suspect]
     Dosage: 250MG TWICE PER DAY
     Route: 048
     Dates: start: 20060822
  2. PREDNISONE [Concomitant]
  3. BLOOD PRESSURE MEDICATION [Concomitant]
  4. PRAVACHOL [Concomitant]

REACTIONS (6)
  - BREATH ODOUR [None]
  - COLD SWEAT [None]
  - DIARRHOEA [None]
  - DYSGEUSIA [None]
  - ERUCTATION [None]
  - FLATULENCE [None]
